FAERS Safety Report 8294774-X (Version None)
Quarter: 2012Q2

REPORT INFORMATION
  Report Type: 
  Country: None (occurrence: None)
  Receive Date: 20120418
  Receipt Date: 20120410
  Transmission Date: 20120825
  Serious: Yes (Death)
  Sender: FDA-Public Use
  Company Number: GB-PFIZER INC-2012094915

PATIENT
  Age: 28 Year
  Sex: Male

DRUGS (4)
  1. MORPHINE SULFATE [Suspect]
  2. OXYCODONE HYDROCHLORIDE [Suspect]
     Indication: SUBSTANCE USE
     Dosage: UNK
     Dates: start: 20110601
  3. ALCOHOL [Suspect]
     Indication: SUBSTANCE USE
     Dosage: UNK
     Route: 048
     Dates: start: 20110601
  4. COCAINE [Suspect]
     Indication: SUBSTANCE USE
     Dosage: UNK
     Dates: start: 20110601

REACTIONS (2)
  - DRUG INTERACTION [None]
  - DRUG LEVEL ABOVE THERAPEUTIC [None]
